FAERS Safety Report 15801101 (Version 1)
Quarter: 2019Q1

REPORT INFORMATION
  Report Type: Spontaneous
  Country: US (occurrence: US)
  Receive Date: 20190109
  Receipt Date: 20190109
  Transmission Date: 20190417
  Serious: No
  Sender: FDA-Public Use
  Company Number: US-ASTRAZENECA-2018SF66800

PATIENT
  Age: 79 Year
  Sex: Female
  Weight: 73.5 kg

DRUGS (3)
  1. FASLODEX [Suspect]
     Active Substance: FULVESTRANT
     Indication: BREAST CANCER METASTATIC
     Route: 030
  2. FASLODEX [Suspect]
     Active Substance: FULVESTRANT
     Route: 030
  3. IBRANCE [Suspect]
     Active Substance: PALBOCICLIB
     Indication: BREAST CANCER METASTATIC
     Route: 048
     Dates: start: 20181108

REACTIONS (9)
  - Head discomfort [Unknown]
  - Cough [Unknown]
  - Injection site pain [Unknown]
  - Red blood cell count decreased [Unknown]
  - Asthenia [Unknown]
  - Cold-stimulus headache [Unknown]
  - Injection site haemorrhage [Unknown]
  - Injection site bruising [Unknown]
  - Stomatitis [Unknown]

NARRATIVE: CASE EVENT DATE: 20181124
